FAERS Safety Report 21171910 (Version 1)
Quarter: 2022Q3

REPORT INFORMATION
  Report Type: Spontaneous
  Country: CN (occurrence: CN)
  Receive Date: 20220804
  Receipt Date: 20220804
  Transmission Date: 20221027
  Serious: Yes (Hospitalization, Other)
  Sender: FDA-Public Use
  Company Number: CN-PFIZER INC-PV202200035728

PATIENT
  Age: 7 Year
  Sex: Male
  Weight: 23.2 kg

DRUGS (4)
  1. MEDROL [Suspect]
     Active Substance: METHYLPREDNISOLONE
     Indication: Nephrotic syndrome
     Dosage: 8 MG, 1X/DAY
     Route: 048
     Dates: start: 20200403, end: 20220719
  2. MEDROL [Suspect]
     Active Substance: METHYLPREDNISOLONE
     Dosage: 4MG-16MG PER DAY
  3. MEDROL [Suspect]
     Active Substance: METHYLPREDNISOLONE
     Dosage: 4 MG, 1X/DAY
     Route: 048
  4. PREDNISONE ACETATE [Suspect]
     Active Substance: PREDNISONE ACETATE
     Indication: Nephrotic syndrome
     Dosage: 15 MG, 1X/DAY
     Route: 048
     Dates: start: 20220205, end: 20220402

REACTIONS (4)
  - Nephrotic syndrome [Unknown]
  - Disease recurrence [Unknown]
  - Growth retardation [Unknown]
  - Microsomia [Unknown]

NARRATIVE: CASE EVENT DATE: 20220708
